FAERS Safety Report 8889741 (Version 1)
Quarter: 2012Q4

REPORT INFORMATION
  Report Type: 
  Country: US (occurrence: US)
  Receive Date: 20121107
  Receipt Date: 20121107
  Transmission Date: 20130627
  Serious: No
  Sender: FDA-Public Use
  Company Number: US-009507513-1211USA001310

PATIENT
  Age: 56 Year
  Sex: Female

DRUGS (2)
  1. SINGULAIR [Suspect]
     Route: 048
  2. ZYRTEC [Suspect]

REACTIONS (8)
  - Asocial behaviour [Unknown]
  - Anxiety [Unknown]
  - Memory impairment [Unknown]
  - Migraine [Unknown]
  - Morbid thoughts [Unknown]
  - Insomnia [Unknown]
  - Nausea [Unknown]
  - Depression [Unknown]
